FAERS Safety Report 7128130-4 (Version None)
Quarter: 2010Q4

REPORT INFORMATION
  Report Type: 
  Country: None (occurrence: None)
  Receive Date: 20101130
  Receipt Date: 20101109
  Transmission Date: 20110411
  Serious: No
  Sender: FDA-Public Use
  Company Number: US-ROXANE LABORATORIES, INC.-2010-RO-01489RO

PATIENT
  Age: 8 Year
  Sex: Female

DRUGS (1)
  1. CALCITRIOL [Suspect]

REACTIONS (3)
  - PRODUCT DEPOSIT [None]
  - PRODUCT ODOUR ABNORMAL [None]
  - PRODUCT TASTE ABNORMAL [None]
